FAERS Safety Report 8578742-6 (Version None)
Quarter: 2012Q3

REPORT INFORMATION
  Report Type: 
  Country: None (occurrence: None)
  Receive Date: 20120808
  Receipt Date: 20120730
  Transmission Date: 20120928
  Serious: Yes (Hospitalization)
  Sender: FDA-Public Use
  Company Number: US-BAYER-2012-058012

PATIENT
  Age: 30 Year
  Sex: Female
  Weight: 58.957 kg

DRUGS (12)
  1. PROTEASE [Concomitant]
     Dosage: UNK
     Dates: start: 20050517
  2. DIAZEPAM [Concomitant]
     Dosage: UNK
     Dates: start: 20050301
  3. HYDROCODONE BITARTRATE [Concomitant]
     Dosage: UNK
     Dates: start: 20050301
  4. ADVIL [Concomitant]
     Dosage: UNK
     Dates: start: 20050516
  5. LYRICA [Concomitant]
     Dosage: 75 MG, UNK
  6. LEXAPRO [Concomitant]
     Indication: DEPRESSION
     Dosage: UNK
     Dates: start: 20050101, end: 20090101
  7. VICODIN [Concomitant]
     Indication: PAIN
     Dosage: UNK
     Dates: start: 20080801, end: 20091201
  8. YASMIN [Suspect]
     Indication: CONTRACEPTION
     Dosage: UNK
     Dates: start: 20050201, end: 20050501
  9. KLONOPIN [Concomitant]
     Indication: ANXIETY
     Dosage: 0.5 MG, UNK
     Dates: start: 20080801, end: 20091201
  10. YASMIN [Suspect]
     Indication: PREMENSTRUAL SYNDROME
  11. XANAX [Concomitant]
     Indication: ANXIETY
     Dosage: 0.25 MG, UNK
     Dates: start: 20080801, end: 20091201
  12. PROVIGIL [Concomitant]
     Dosage: 200 MG, UNK

REACTIONS (6)
  - SUBSTANCE ABUSE [None]
  - INJURY [None]
  - EMOTIONAL DISTRESS [None]
  - DEPRESSION [None]
  - PULMONARY EMBOLISM [None]
  - PELVIC VENOUS THROMBOSIS [None]
